FAERS Safety Report 5822619-3 (Version None)
Quarter: 2008Q3

REPORT INFORMATION
  Report Type: 
  Country: None (occurrence: None)
  Receive Date: 20080714
  Receipt Date: 20080312
  Transmission Date: 20090109
  Serious: Yes (Other)
  Sender: FDA-Public Use
  Company Number: 552879

PATIENT
  Age: 70 Year
  Sex: Male
  Weight: 100.7 kg

DRUGS (1)
  1. BONIVA [Suspect]
     Indication: OSTEOPOROSIS
     Dosage: 150 MG 1 PER MONTH ORAL
     Route: 048
     Dates: start: 20080307, end: 20080307

REACTIONS (3)
  - BACK PAIN [None]
  - CHEST PAIN [None]
  - MUSCULOSKELETAL CHEST PAIN [None]
